FAERS Safety Report 14243963 (Version 1)
Quarter: 2017Q4

REPORT INFORMATION
  Report Type: Spontaneous
  Country: US (occurrence: US)
  Receive Date: 20171201
  Receipt Date: 20171201
  Transmission Date: 20180321
  Serious: Yes (Death)
  Sender: FDA-Public Use
  Company Number: US-SAOL THERAPEUTICS-2017SAO01760

PATIENT
  Sex: Male
  Weight: 132.9 kg

DRUGS (2)
  1. LIORESAL [Suspect]
     Active Substance: BACLOFEN
     Dosage: 125 ?G, \DAY
     Route: 037
     Dates: start: 20170907
  2. LIORESAL [Suspect]
     Active Substance: BACLOFEN
     Indication: MUSCLE SPASTICITY
     Dosage: 100.14 ?G, \DAY
     Route: 037

REACTIONS (2)
  - Brain neoplasm [Fatal]
  - Device failure [Unknown]

NARRATIVE: CASE EVENT DATE: 20161224
